FAERS Safety Report 5795611-5 (Version None)
Quarter: 2008Q2

REPORT INFORMATION
  Report Type: 
  Country: None (occurrence: None)
  Receive Date: 20080630
  Receipt Date: 20080623
  Transmission Date: 20081010
  Serious: Yes (Other)
  Sender: FDA-Public Use
  Company Number: US-PFIZER INC-2008052434

PATIENT
  Sex: Female
  Weight: 118 kg

DRUGS (3)
  1. CELEBREX [Suspect]
     Indication: OSTEOARTHRITIS
  2. CELEBREX [Suspect]
     Indication: PAIN
  3. ANTIHYPERTENSIVES [Concomitant]

REACTIONS (5)
  - DYSPNOEA [None]
  - MYASTHENIA GRAVIS [None]
  - SPEECH DISORDER [None]
  - SPINAL FUSION SURGERY [None]
  - SWELLING [None]
